FAERS Safety Report 4331274-3 (Version None)
Quarter: 2004Q1

REPORT INFORMATION
  Report Type: 
  Country: None (occurrence: None)
  Receive Date: 20040331
  Receipt Date: 20040318
  Transmission Date: 20041129
  Serious: Yes (Hospitalization)
  Sender: FDA-Public Use
  Company Number: RENA-10879

PATIENT
  Age: 64 Year
  Sex: Male

DRUGS (10)
  1. PHOSBLOCK - 250 MG TABLET [Suspect]
     Indication: HYPERPHOSPHATAEMIA
     Dosage: 2.5 G DAILY PO
     Route: 048
     Dates: start: 20031118, end: 20031219
  2. PHOSBLOCK - 250 MG TABLET [Suspect]
     Indication: HYPERPHOSPHATAEMIA
     Dosage: 4.0 DAILY PO
     Route: 048
     Dates: start: 20031220
  3. RHEI RHIZOMA [Suspect]
     Indication: CONSTIPATION
     Dosage: 1.5 G DAILY PO
     Route: 048
     Dates: start: 20040114
  4. WARFARIN POTASSIUM [Concomitant]
  5. AMLODIPINE BESYLATE [Concomitant]
  6. ALLOPURINOL [Concomitant]
  7. ASPIRIN [Concomitant]
  8. DIPYRIDAMOLE [Concomitant]
  9. SORBITOL [Concomitant]
  10. SENNOSIDE [Concomitant]

REACTIONS (3)
  - CONSTIPATION [None]
  - HAEMATOMA [None]
  - THROMBOCYTOPENIA [None]
